FAERS Safety Report 18645768 (Version 4)
Quarter: 2021Q4

REPORT INFORMATION
  Report Type: Spontaneous
  Country: AU (occurrence: AU)
  Receive Date: 20201222
  Receipt Date: 20211011
  Transmission Date: 20220304
  Serious: Yes (Hospitalization)
  Sender: FDA-Public Use
  Company Number: AU-BEH-2020126359

PATIENT
  Age: 59 Year
  Sex: Female
  Weight: 82 kg

DRUGS (6)
  1. HIZENTRA [Suspect]
     Active Substance: HUMAN IMMUNOGLOBULIN G
     Indication: Immunodeficiency common variable
     Dosage: 10 GRAM, QW
     Route: 058
     Dates: start: 20201208
  2. HIZENTRA [Suspect]
     Active Substance: HUMAN IMMUNOGLOBULIN G
     Indication: Primary immunodeficiency syndrome
     Dosage: 10 GRAM EVERY 10 DAYS (30G MONTHLY)
     Route: 058
     Dates: start: 20200325
  3. HIZENTRA [Suspect]
     Active Substance: HUMAN IMMUNOGLOBULIN G
     Dosage: 30 G (150 ML) 4-WEEKLY
     Route: 058
     Dates: end: 202101
  4. PREDNISOLONE [Concomitant]
     Active Substance: PREDNISOLONE
     Dosage: APPROXIMATELY 50 MILLIGRAM, QD
  5. THYROXINE [Concomitant]
     Active Substance: LEVOTHYROXINE
     Dosage: UNK, QD
  6. METFORMIN [Concomitant]
     Active Substance: METFORMIN HYDROCHLORIDE

REACTIONS (12)
  - Infusion site abscess [Recovered/Resolved]
  - Abdominal wall abscess [Recovered/Resolved]
  - Erythema [Recovered/Resolved]
  - Swelling [Recovered/Resolved]
  - Pain [Recovered/Resolved]
  - Pyrexia [Recovered/Resolved]
  - Erythema [Recovered/Resolved]
  - Swelling [Recovered/Resolved]
  - Pain [Recovered/Resolved]
  - Pyrexia [Recovered/Resolved]
  - Injection site infection [Recovered/Resolved]
  - Sepsis [Recovered/Resolved]

NARRATIVE: CASE EVENT DATE: 20201201
